FAERS Safety Report 5080511-9 (Version None)
Quarter: 2006Q3

REPORT INFORMATION
  Report Type: 
  Country: None (occurrence: None)
  Receive Date: 20060720
  Receipt Date: 20051125
  Transmission Date: 20061208
  Serious: Yes (Hospitalization, Other)
  Sender: FDA-Public Use
  Company Number: 2005146428

PATIENT
  Sex: Male
  Weight: 70.3075 kg

DRUGS (11)
  1. CELEBREX [Suspect]
     Indication: ARTHRITIS
     Dosage: 200 MG (200 MG,1 IN 1 D)
  2. BEXTRA [Suspect]
     Indication: ARTHRITIS
     Dosage: 20 MG (1 IN 1 D)
  3. MEFENAMIC ACID [Suspect]
     Indication: ARTHRITIS
  4. ACETAMINOPHEN AND OXYCODONE HCL [Suspect]
     Indication: ARTHRITIS
  5. EXTRA STRENGTH TYLENOL [Suspect]
     Indication: ARTHRITIS
  6. ACETAMINOPHEN AND HYDROCODONE BITARTRATE [Suspect]
     Indication: ARTHRITIS
     Dates: end: 20051001
  7. ATENOLOL [Concomitant]
  8. SIMVASTATIN [Concomitant]
  9. NIACIN [Concomitant]
  10. BENAZEPRIL (BENAZEPRIL) [Concomitant]
  11. GLIMEPIRIDE [Concomitant]

REACTIONS (7)
  - ARTHRALGIA [None]
  - CONSTIPATION [None]
  - EROSIVE DUODENITIS [None]
  - HYPERSOMNIA [None]
  - INSOMNIA [None]
  - MYALGIA [None]
  - PEPTIC ULCER HAEMORRHAGE [None]
